FAERS Safety Report 8412683-X (Version None)
Quarter: 2012Q2

REPORT INFORMATION
  Report Type: 
  Country: None (occurrence: None)
  Receive Date: 20120605
  Receipt Date: 20120522
  Transmission Date: 20120825
  Serious: Yes (Hospitalization, Other)
  Sender: FDA-Public Use
  Company Number: US-MYLANLABS-2010AC000060

PATIENT
  Age: 65 Year
  Sex: Male
  Weight: 52.62 kg

DRUGS (67)
  1. FUROSEMIDE [Concomitant]
  2. LIPITOR [Concomitant]
  3. PRILOSEC [Concomitant]
  4. COUMADIN [Concomitant]
  5. TOPROL-XL [Concomitant]
  6. OXYCODONE [Concomitant]
  7. VANCOMYCIN [Concomitant]
  8. VICODIN [Concomitant]
  9. SYNTHROID [Concomitant]
  10. COLACE [Concomitant]
  11. ATORVASTATIN CALCIUM [Concomitant]
  12. CARVEDILOL [Concomitant]
  13. FOLIC ACID [Concomitant]
  14. PANTOPRAZOLE [Concomitant]
  15. POTASSIUM PHOSPHATES [Concomitant]
  16. ASCORBIC ACID [Concomitant]
  17. PREDNISONE [Concomitant]
  18. ACETAMINOPHEN [Concomitant]
  19. MULTI-VITAMIN [Concomitant]
  20. HALDOL [Concomitant]
  21. IBUPROFEN (ADVIL) [Concomitant]
  22. ASPIRIN [Concomitant]
  23. MILK OF MAGNESIA TAB [Concomitant]
  24. MECLIZINE [Concomitant]
  25. OMEPRAZOLE [Concomitant]
  26. POTASSIUM CHLORIDE [Concomitant]
  27. LEVOTHYROXINE SODIUM [Concomitant]
  28. VASOTEC [Concomitant]
  29. IMDUR [Concomitant]
  30. NITROGLYCERIN [Concomitant]
  31. MULTI-VITAMINS [Concomitant]
  32. AVELOX [Concomitant]
  33. CYANOCOBALAMIN [Concomitant]
  34. ACETAMINOPHEN [Concomitant]
  35. NITROGLYCERIN [Concomitant]
  36. DUONEB [Concomitant]
  37. LASIX [Concomitant]
  38. AMIODARONE HCL [Concomitant]
  39. COREG [Concomitant]
  40. LISINOPRIL [Concomitant]
  41. ALDACTONE [Concomitant]
  42. ATACAND [Concomitant]
  43. WELLBUTRIN [Concomitant]
  44. ENOXAPARIN [Concomitant]
  45. GLUCAGON [Concomitant]
  46. LORAZEPAM [Concomitant]
  47. VANTIN [Concomitant]
  48. PERCOCET [Concomitant]
  49. ZITHROMAX [Concomitant]
  50. IBUPROFEN [Concomitant]
  51. SPIRONOLACTONE [Concomitant]
  52. AZITHROMYCIN [Concomitant]
  53. GUAIFENESIN [Concomitant]
  54. HEPARIN [Concomitant]
  55. CEPACOL /00104701/ [Concomitant]
  56. ISOSORBIDE MONONITRATE [Concomitant]
  57. MAGNESIUM OXIDE [Concomitant]
  58. DIGOXIN [Suspect]
     Route: 048
     Dates: start: 20071225, end: 20080308
  59. TERAZOSIN HCL [Concomitant]
  60. VALSARTAN [Concomitant]
  61. IBUPROFEN (ADVIL) [Concomitant]
  62. COREG [Concomitant]
  63. PROTONIX [Concomitant]
  64. FISH OIL [Concomitant]
  65. LEVOTHROID [Concomitant]
  66. ZOSYN [Concomitant]
  67. AMBIEN [Concomitant]

REACTIONS (75)
  - DYSPEPSIA [None]
  - EPIGASTRIC DISCOMFORT [None]
  - HAEMODIALYSIS [None]
  - ATRIAL FLUTTER [None]
  - HYPOTENSION [None]
  - LACERATION [None]
  - COGNITIVE DISORDER [None]
  - CARDIAC MURMUR [None]
  - CHEST PAIN [None]
  - CARDIAC FAILURE CONGESTIVE [None]
  - ABDOMINAL PAIN UPPER [None]
  - FALL [None]
  - IMPLANTABLE DEFIBRILLATOR INSERTION [None]
  - CHEST DISCOMFORT [None]
  - PNEUMONIA [None]
  - THORACIC VERTEBRAL FRACTURE [None]
  - HYPERTENSIVE CARDIOMYOPATHY [None]
  - SEPTIC SHOCK [None]
  - MUSCULAR WEAKNESS [None]
  - PAIN [None]
  - INJURY [None]
  - HYPERHIDROSIS [None]
  - ASTHENIA [None]
  - HYPOAESTHESIA [None]
  - MYOCARDIAL INFARCTION [None]
  - HYPOPHOSPHATAEMIA [None]
  - NORMOCHROMIC NORMOCYTIC ANAEMIA [None]
  - ARTHRALGIA [None]
  - BRONCHITIS [None]
  - DYSPNOEA EXERTIONAL [None]
  - DYSSTASIA [None]
  - ECHOCARDIOGRAM ABNORMAL [None]
  - NEUROPATHY PERIPHERAL [None]
  - SKIN ULCER [None]
  - URINARY INCONTINENCE [None]
  - HYPERTENSION [None]
  - WEIGHT INCREASED [None]
  - CARDIAC ENZYMES INCREASED [None]
  - BREATH SOUNDS ABNORMAL [None]
  - GAIT DISTURBANCE [None]
  - HYPERKALAEMIA [None]
  - IMPLANTABLE DEFIBRILLATOR REPLACEMENT [None]
  - MENTAL STATUS CHANGES [None]
  - SLEEP APNOEA SYNDROME [None]
  - PALPITATIONS [None]
  - CARDIAC DISORDER [None]
  - RENAL DISORDER [None]
  - SEPSIS [None]
  - HYPOMAGNESAEMIA [None]
  - PUPILS UNEQUAL [None]
  - CHEST X-RAY ABNORMAL [None]
  - GOUTY TOPHUS [None]
  - RENAL CYST [None]
  - DIZZINESS [None]
  - BLOOD PRESSURE DECREASED [None]
  - DYSPNOEA [None]
  - BACK PAIN [None]
  - CORONARY ARTERY DISEASE [None]
  - RENAL FAILURE ACUTE [None]
  - GENERAL PHYSICAL HEALTH DETERIORATION [None]
  - CONFUSIONAL STATE [None]
  - CARDIOMEGALY [None]
  - RHONCHI [None]
  - ILL-DEFINED DISORDER [None]
  - NAUSEA [None]
  - TOXICITY TO VARIOUS AGENTS [None]
  - COUGH [None]
  - RENAL FAILURE [None]
  - ATRIAL FIBRILLATION [None]
  - CONSTIPATION [None]
  - LEUKOCYTOSIS [None]
  - WEIGHT DECREASED [None]
  - ISCHAEMIC CARDIOMYOPATHY [None]
  - THROMBOCYTOPENIA [None]
  - GASTROOESOPHAGEAL REFLUX DISEASE [None]
